FAERS Safety Report 9827246 (Version 1)
Quarter: 2013Q4

REPORT INFORMATION
  Report Type: Spontaneous
  Country: US (occurrence: None)
  Receive Date: 20131120
  Receipt Date: 20131120
  Transmission Date: 20140711
  Serious: Yes (Hospitalization, Other)
  Sender: FDA-Public Use
  Company Number: 1000048452

PATIENT
  Age: 43 Year
  Sex: Female

DRUGS (2)
  1. VIIBRYD (VILAZODONE HYDROCHLORIDE) (10 MILLIGRAM, TABLETS) [Suspect]
     Dosage: 10MG (10MG, 1 IN 1 D), ORAL
     Route: 048
  2. LAMICTAL (LAMOTRIGINE) [Suspect]

REACTIONS (1)
  - Serotonin syndrome [None]
